FAERS Safety Report 6235825-3 (Version None)
Quarter: 2009Q2

REPORT INFORMATION
  Report Type: 
  Country: None (occurrence: None)
  Receive Date: 20090617
  Receipt Date: 20090617
  Transmission Date: 20091009
  Serious: No
  Sender: FDA-Public Use
  Company Number: None

PATIENT
  Age: 32 Year
  Sex: Male
  Weight: 97.5234 kg

DRUGS (2)
  1. ZICAM COLD REMEDY NASAL GEL ZINCUM 2X GLUCONICUMMATRIXX INITIATIVES, I [Suspect]
     Indication: NASOPHARYNGITIS
     Dosage: 1 SPRAY ONCE NASAL
     Route: 045
     Dates: start: 20090127, end: 20090127
  2. ZICAM COLD REMEDY NASAL GEL ZINCUM 2X GLUCONICUMMATRIXX INITIATIVES, I [Suspect]
     Indication: PAIN
     Dosage: 1 SPRAY ONCE NASAL
     Route: 045
     Dates: start: 20090127, end: 20090127

REACTIONS (5)
  - DYSGEUSIA [None]
  - MIDDLE INSOMNIA [None]
  - MIGRAINE [None]
  - NASAL DISCOMFORT [None]
  - PAROSMIA [None]
